FAERS Safety Report 16767819 (Version 1)
Quarter: 2019Q3

REPORT INFORMATION
  Report Type: Report from Study
  Country: CA (occurrence: CA)
  Receive Date: 20190903
  Receipt Date: 20190903
  Transmission Date: 20191005
  Serious: Yes (Death, Other)
  Sender: FDA-Public Use
  Company Number: CA-PFIZER INC-2019373826

PATIENT
  Age: 91 Year
  Sex: Female

DRUGS (4)
  1. ZOMETA [Suspect]
     Active Substance: ZOLEDRONIC ACID
     Indication: METASTASES TO BONE
     Dosage: 4  MG, UNK
     Route: 042
  2. ZOMETA [Suspect]
     Active Substance: ZOLEDRONIC ACID
     Dosage: 3.3 MG, UNK
     Route: 042
  3. PAMIDRONATE DISODIUM. [Suspect]
     Active Substance: PAMIDRONATE DISODIUM
     Indication: METASTASES TO BONE
     Dosage: UNK (TOTAL)
     Route: 042
  4. ZOMETA [Suspect]
     Active Substance: ZOLEDRONIC ACID
     Dosage: 4 MG, UNK
     Route: 042

REACTIONS (15)
  - Breath sounds abnormal [Fatal]
  - Dehydration [Fatal]
  - Depressed level of consciousness [Fatal]
  - Hypokinesia [Fatal]
  - Pneumonia [Fatal]
  - Transient ischaemic attack [Fatal]
  - Lethargy [Fatal]
  - Cardiac failure [Fatal]
  - Poor venous access [Fatal]
  - Hypophagia [Fatal]
  - Tumour marker increased [Fatal]
  - Weight bearing difficulty [Fatal]
  - Confusional state [Fatal]
  - Dementia [Fatal]
  - Vein disorder [Fatal]
